FAERS Safety Report 4743068-5 (Version None)
Quarter: 2005Q3

REPORT INFORMATION
  Report Type: 
  Country: None (occurrence: None)
  Receive Date: 20050811
  Receipt Date: 20050727
  Transmission Date: 20060218
  Serious: Yes (Hospitalization)
  Sender: FDA-Public Use
  Company Number: GB-MERCK-0507GBR00202

PATIENT
  Sex: Female

DRUGS (1)
  1. INDOCIN SR [Suspect]
     Route: 048
     Dates: end: 20050516

REACTIONS (1)
  - NEPHROPATHY TOXIC [None]
